FAERS Safety Report 18749757 (Version 3)
Quarter: 2024Q1

REPORT INFORMATION
  Report Type: Spontaneous
  Country: DE (occurrence: DE)
  Receive Date: 20210117
  Receipt Date: 20240327
  Transmission Date: 20240410
  Serious: Yes (Life-Threatening, Hospitalization, Other)
  Sender: FDA-Public Use
  Company Number: DE-EMA-DD-20210104-SHUKLA_V-120012

PATIENT
  Age: 53 Year
  Sex: Female

DRUGS (16)
  1. TRIAMCINOLONE ACETONIDE [Suspect]
     Active Substance: TRIAMCINOLONE ACETONIDE
     Indication: Infiltration anaesthesia
     Dosage: UNK
     Route: 050
  2. TRIAMCINOLONE ACETONIDE [Suspect]
     Active Substance: TRIAMCINOLONE ACETONIDE
     Dosage: UNK
     Route: 037
  3. DEXAMETHASONE [Suspect]
     Active Substance: DEXAMETHASONE
     Indication: Infiltration anaesthesia
     Dosage: 4 MG
     Route: 008
  4. NALOXONE [Suspect]
     Active Substance: NALOXONE
     Indication: Pain
     Dosage: 20 MG, BID, NALOXONE W/OXYCODONE
     Route: 048
  5. BISOPROLOL [Suspect]
     Active Substance: BISOPROLOL\BISOPROLOL FUMARATE
     Dosage: 5 MG, QD
     Route: 065
  6. AMLODIPINE [Suspect]
     Active Substance: AMLODIPINE BESYLATE
     Dosage: 5 MG, QD
     Route: 065
  7. LEVOTHYROXINE SODIUM [Suspect]
     Active Substance: LEVOTHYROXINE SODIUM
     Dosage: 125 MCG, QD
     Route: 065
  8. TORSEMIDE [Suspect]
     Active Substance: TORSEMIDE
     Dosage: 5 MG, QD
     Route: 065
  9. METAMIZOLE [Suspect]
     Active Substance: METAMIZOLE
     Indication: Pain
     Dosage: 1 G, QID
     Route: 042
  10. CANDESARTAN [Suspect]
     Active Substance: CANDESARTAN
     Dosage: 16 MG, QD
     Route: 065
  11. VALPROATE SODIUM [Suspect]
     Active Substance: VALPROATE SODIUM
     Dosage: 300 MG, BID
     Route: 065
  12. CELECOXIB [Suspect]
     Active Substance: CELECOXIB
     Indication: Pain
     Dosage: 200 MG, QD
     Route: 048
  13. BUPIVACAINE HYDROCHLORIDE [Suspect]
     Active Substance: BUPIVACAINE HYDROCHLORIDE\BUPIVACAINE HYDROCHLORIDE ANHYDROUS
     Indication: Infiltration anaesthesia
     Dosage: UNK
     Route: 008
  14. BUPIVACAINE HYDROCHLORIDE [Suspect]
     Active Substance: BUPIVACAINE HYDROCHLORIDE\BUPIVACAINE HYDROCHLORIDE ANHYDROUS
     Dosage: UNK
     Route: 050
  15. BUPIVACAINE HYDROCHLORIDE [Suspect]
     Active Substance: BUPIVACAINE HYDROCHLORIDE\BUPIVACAINE HYDROCHLORIDE ANHYDROUS
     Dosage: UNK
     Route: 037
  16. PRILOCAINE HYDROCHLORIDE [Suspect]
     Active Substance: PRILOCAINE HYDROCHLORIDE
     Indication: Infiltration anaesthesia
     Dosage: ON JANUARY 15 AND 17
     Route: 008

REACTIONS (12)
  - Necrotising fasciitis [Recovering/Resolving]
  - Septic shock [Recovered/Resolved]
  - Hypotension [Recovered/Resolved]
  - Interleukin level increased [Recovered/Resolved]
  - C-reactive protein increased [Recovered/Resolved]
  - Procalcitonin increased [Recovered/Resolved]
  - Pain [Recovered/Resolved]
  - Cardiovascular insufficiency [Recovered/Resolved]
  - Pain in extremity [Recovered/Resolved]
  - Back pain [Recovered/Resolved]
  - Erythema [Recovered/Resolved]
  - Escherichia infection [Recovered/Resolved]
